FAERS Safety Report 6583416-7 (Version None)
Quarter: 2010Q1

REPORT INFORMATION
  Report Type: 
  Country: None (occurrence: None)
  Receive Date: 20100216
  Receipt Date: 20100204
  Transmission Date: 20100710
  Serious: Yes (Other)
  Sender: FDA-Public Use
  Company Number: US-ALEXION-A201000140

PATIENT
  Age: 72 Year
  Sex: Female

DRUGS (3)
  1. SOLIRIS [Suspect]
     Indication: PAROXYSMAL NOCTURNAL HAEMOGLOBINURIA
     Dosage: UNK
     Route: 042
     Dates: start: 20070101
  2. SOLIRIS [Suspect]
     Dosage: UNK
     Route: 042
  3. SOLIRIS [Suspect]
     Dosage: UNK
     Route: 042
     Dates: start: 20090101

REACTIONS (2)
  - ABDOMINAL PAIN [None]
  - ANAPHYLACTIC REACTION [None]
